FAERS Safety Report 23530628 (Version 2)
Quarter: 2024Q1

REPORT INFORMATION
  Report Type: Spontaneous
  Country: DE (occurrence: None)
  Receive Date: 20240216
  Receipt Date: 20240304
  Transmission Date: 20240410
  Serious: Yes (Hospitalization)
  Sender: FDA-Public Use
  Company Number: 2024A039365

PATIENT
  Age: 3 Month
  Sex: Male
  Weight: 7 kg

DRUGS (1)
  1. BEYFORTUS [Suspect]
     Active Substance: NIRSEVIMAB-ALIP
     Indication: Atrial septal defect
     Dosage: 100 MG, TOTAL100.0MG ONCE/SINGLE ADMINISTRATION
     Route: 030
     Dates: start: 20231128, end: 20231128

REACTIONS (3)
  - Respiratory syncytial virus infection [Recovered/Resolved]
  - Bronchial hyperreactivity [Unknown]
  - Product use in unapproved indication [Unknown]

NARRATIVE: CASE EVENT DATE: 20231128
